FAERS Safety Report 10584317 (Version 1)
Quarter: 2014Q4

REPORT INFORMATION
  Report Type: Spontaneous
  Country: US (occurrence: None)
  Receive Date: 20141113
  Receipt Date: 20141113
  Transmission Date: 20150529
  Serious: Yes (Other)
  Sender: FDA-Public Use
  Company Number: None

PATIENT
  Age: 42 Year
  Sex: Female
  Weight: 47.63 kg

DRUGS (1)
  1. MEDROXYPROGESTERONE [Suspect]
     Active Substance: MEDROXYPROGESTERONE
     Indication: MENSTRUAL DISORDER
     Dosage: INTO THE MUSCLE
     Dates: start: 20140430

REACTIONS (5)
  - Arthralgia [None]
  - Acne [None]
  - Myalgia [None]
  - Alopecia [None]
  - Pain in extremity [None]

NARRATIVE: CASE EVENT DATE: 20140430
